FAERS Safety Report 6890763-8 (Version None)
Quarter: 2010Q3

REPORT INFORMATION
  Report Type: 
  Country: None (occurrence: None)
  Receive Date: 20100731
  Receipt Date: 20090316
  Transmission Date: 20110219
  Serious: No
  Sender: FDA-Public Use
  Company Number: US-PFIZER INC-2003009782

PATIENT
  Sex: Male

DRUGS (3)
  1. LIPITOR [Suspect]
     Dosage: 10 MG, 1X/DAY
     Route: 048
  2. ISONIAZID [Suspect]
     Indication: TUBERCULIN TEST POSITIVE
     Route: 065
  3. ALCOHOL [Suspect]
     Route: 065

REACTIONS (7)
  - EPISTAXIS [None]
  - GAMMA-GLUTAMYLTRANSFERASE INCREASED [None]
  - GINGIVAL BLEEDING [None]
  - MUSCLE SPASMS [None]
  - PLATELET COUNT DECREASED [None]
  - TUBERCULIN TEST POSITIVE [None]
  - TUBERCULOSIS [None]
